FAERS Safety Report 4778726-X (Version None)
Quarter: 2005Q3

REPORT INFORMATION
  Report Type: 
  Country: None (occurrence: None)
  Receive Date: 20050926
  Receipt Date: 20050509
  Transmission Date: 20060218
  Serious: Yes (Hospitalization, Other)
  Sender: FDA-Public Use
  Company Number: DE-BRISTOL-MYERS SQUIBB COMPANY-12965570

PATIENT
  Age: 15 Year
  Sex: Female

DRUGS (1)
  1. METFORMIN HCL [Suspect]
     Dosage: INGESTED 38.25G IN A SUICIDE ATTEMPT.
     Route: 048

REACTIONS (5)
  - LACTIC ACIDOSIS [None]
  - METABOLIC ACIDOSIS [None]
  - OVERDOSE [None]
  - RENAL FAILURE ACUTE [None]
  - SUICIDE ATTEMPT [None]
